FAERS Safety Report 23873810 (Version 2)
Quarter: 2024Q2

REPORT INFORMATION
  Report Type: Spontaneous
  Country: US (occurrence: US)
  Receive Date: 20240520
  Receipt Date: 20240618
  Transmission Date: 20240716
  Serious: Yes (Hospitalization, Other)
  Sender: FDA-Public Use
  Company Number: US-AUROBINDO-AUR-APL-2024-022976

PATIENT
  Age: 16 Year
  Sex: Female

DRUGS (20)
  1. ERYTHROMYCIN [Suspect]
     Active Substance: ERYTHROMYCIN
     Indication: Gastritis
     Dosage: UNK
     Route: 065
  2. CLONIDINE [Suspect]
     Active Substance: CLONIDINE
     Indication: Seizure
     Dosage: UNK
     Route: 042
  3. LORAZEPAM [Suspect]
     Active Substance: LORAZEPAM
     Indication: Seizure
     Dosage: UNK
     Route: 042
  4. LORAZEPAM [Suspect]
     Active Substance: LORAZEPAM
     Indication: Epilepsy
  5. ACETAMINOPHEN [Concomitant]
     Active Substance: ACETAMINOPHEN
     Indication: Pain
     Dosage: UNK
     Route: 065
  6. ACETAMINOPHEN [Concomitant]
     Active Substance: ACETAMINOPHEN
     Indication: Analgesic therapy
  7. ZONISAMIDE [Concomitant]
     Active Substance: ZONISAMIDE
     Indication: Seizure
     Dosage: UNK
     Route: 065
  8. DEXMEDETOMIDINE HYDROCHLORIDE [Concomitant]
     Active Substance: DEXMEDETOMIDINE HYDROCHLORIDE
     Indication: Seizure
     Dosage: UNK
     Route: 065
  9. DEXMEDETOMIDINE HYDROCHLORIDE [Concomitant]
     Active Substance: DEXMEDETOMIDINE HYDROCHLORIDE
     Indication: Paroxysmal sympathetic hyperactivity
  10. FAMOTIDINE [Concomitant]
     Active Substance: FAMOTIDINE
     Indication: Gastritis prophylaxis
     Dosage: UNK
     Route: 042
  11. ALUMINUM HYDROXIDE [Concomitant]
     Active Substance: ALUMINUM HYDROXIDE
     Indication: Gastritis prophylaxis
     Dosage: UNK
     Route: 065
  12. MAGNESIUM HYDROXIDE [Concomitant]
     Active Substance: MAGNESIUM HYDROXIDE
     Indication: Gastritis prophylaxis
     Dosage: UNK
     Route: 065
  13. SIMETHICONE (DIMETHICONE) [Concomitant]
     Active Substance: DIMETHICONE
     Indication: Gastritis prophylaxis
     Dosage: UNK
     Route: 065
  14. BACLOFEN [Concomitant]
     Active Substance: BACLOFEN
     Indication: Seizure
     Dosage: UNK
     Route: 065
  15. BACLOFEN [Concomitant]
     Active Substance: BACLOFEN
     Indication: Paroxysmal sympathetic hyperactivity
  16. KETOROLAC [Concomitant]
     Active Substance: KETOROLAC TROMETHAMINE
     Indication: Analgesic therapy
     Dosage: UNK
     Route: 065
  17. MORPHINE [Concomitant]
     Active Substance: MORPHINE
     Indication: Analgesic therapy
     Dosage: UNK
     Route: 065
  18. LEVOCARNITINE [Concomitant]
     Active Substance: LEVOCARNITINE
     Indication: Vitamin supplementation
     Dosage: UNK
     Route: 042
  19. GABAPENTIN [Concomitant]
     Active Substance: GABAPENTIN
     Indication: Paroxysmal sympathetic hyperactivity
     Dosage: UNK
     Route: 065
  20. LEVETIRACETAM [Concomitant]
     Active Substance: LEVETIRACETAM
     Indication: Epilepsy
     Dosage: UNK
     Route: 065

REACTIONS (2)
  - Electrocardiogram QT prolonged [Unknown]
  - Drug ineffective [Unknown]
